FAERS Safety Report 22148661 (Version 1)
Quarter: 2023Q1

REPORT INFORMATION
  Report Type: Other
  Country: TN (occurrence: TN)
  Receive Date: 20230328
  Receipt Date: 20230328
  Transmission Date: 20230418
  Serious: Yes (Hospitalization, Other)
  Sender: FDA-Public Use
  Company Number: TN-Alcami_Corporation-USA-POI0581202300003

PATIENT
  Age: 35 Year
  Sex: Female

DRUGS (3)
  1. AZASAN [Suspect]
     Active Substance: AZATHIOPRINE
     Indication: Crohn^s disease
     Route: 065
     Dates: start: 202101
  2. ACENOCOUMAROL [Suspect]
     Active Substance: ACENOCOUMAROL
     Indication: Thrombosis
     Dates: start: 202101
  3. ACENOCOUMAROL [Suspect]
     Active Substance: ACENOCOUMAROL
     Dosage: 2 MG AND 3 MG ON ALTERNATE DAYS FOR 17 DAYS
     Dates: start: 202011, end: 202101

REACTIONS (2)
  - Anticoagulation drug level below therapeutic [Recovered/Resolved]
  - Drug interaction [Recovered/Resolved]

NARRATIVE: CASE EVENT DATE: 20210101
